FAERS Safety Report 12843508 (Version 2)
Quarter: 2016Q4

REPORT INFORMATION
  Report Type: Spontaneous
  Country: US (occurrence: US)
  Receive Date: 20161013
  Receipt Date: 20161026
  Transmission Date: 20170207
  Serious: Yes (Life-Threatening, Hospitalization)
  Sender: FDA-Public Use
  Company Number: US-DRREDDYS-USA/USA/16/0084025

PATIENT
  Age: 65 Year
  Sex: Male

DRUGS (7)
  1. LEVOFLOXACIN TABLETS [Suspect]
     Active Substance: LEVOFLOXACIN
     Indication: PROPHYLAXIS
     Dosage: FOR 7 DAYS
     Route: 065
  2. CEFEPIME [Suspect]
     Active Substance: CEFEPIME HYDROCHLORIDE
     Indication: PROPHYLAXIS
     Route: 042
  3. METRONIDAZOLE. [Suspect]
     Active Substance: METRONIDAZOLE
     Dosage: FOR 7 DAYS
     Route: 065
  4. LEVOFLOXACIN TABLETS [Suspect]
     Active Substance: LEVOFLOXACIN
     Route: 042
  5. PIPERACILLIN/TAZOBACTAM [Suspect]
     Active Substance: PIPERACILLIN SODIUM\TAZOBACTAM SODIUM
     Indication: PROPHYLAXIS
     Route: 042
  6. METRONIDAZOLE. [Suspect]
     Active Substance: METRONIDAZOLE
     Indication: PROPHYLAXIS
     Dosage: FOR 7 DAYS
     Route: 042
  7. METRONIDAZOLE. [Suspect]
     Active Substance: METRONIDAZOLE
     Route: 042

REACTIONS (1)
  - Drug ineffective [Unknown]
